FAERS Safety Report 9153478 (Version 1)
Quarter: 2013Q1

REPORT INFORMATION
  Report Type: Spontaneous
  Country: CA (occurrence: None)
  Receive Date: 20130205
  Receipt Date: 20130205
  Transmission Date: 20140127
  Serious: Yes (Other)
  Sender: FDA-Public Use
  Company Number: 2013-000322

PATIENT
  Age: 57 Year
  Sex: 0

DRUGS (1)
  1. ENABLEX [Suspect]
     Route: 048

REACTIONS (9)
  - Bladder disorder [None]
  - Bladder dilatation [None]
  - Blood pressure increased [None]
  - Body temperature increased [None]
  - Feeling cold [None]
  - Heart rate increased [None]
  - Tremor [None]
  - Feeling abnormal [None]
  - Constipation [None]
